FAERS Safety Report 6293627-6 (Version None)
Quarter: 2009Q3

REPORT INFORMATION
  Report Type: 
  Country: None (occurrence: None)
  Receive Date: 20090730
  Receipt Date: 20090716
  Transmission Date: 20100115
  Serious: Yes (Death)
  Sender: FDA-Public Use
  Company Number: KV200800874

PATIENT
  Age: 37 Year
  Sex: Male
  Weight: 125.2 kg

DRUGS (7)
  1. MORPHINE SULFATE [Suspect]
     Indication: PAIN
     Dosage: 15 MG, TID PRN, ORAL
     Route: 048
     Dates: start: 20071024
  2. FENTANYL-100 [Concomitant]
  3. PROTONIX [Concomitant]
  4. CYMBALTA [Concomitant]
  5. SEROQUEL [Concomitant]
  6. VALPROIC ACID [Concomitant]
  7. TOPAMAX [Concomitant]

REACTIONS (2)
  - DRUG TOXICITY [None]
  - PRODUCT QUALITY ISSUE [None]
